FAERS Safety Report 15929711 (Version 4)
Quarter: 2019Q3

REPORT INFORMATION
  Report Type: Report from Study
  Country: US (occurrence: US)
  Receive Date: 20190206
  Receipt Date: 20190924
  Transmission Date: 20191004
  Serious: No
  Sender: FDA-Public Use
  Company Number: PHEH2019US005351

PATIENT
  Sex: Male

DRUGS (2)
  1. ENTRESTO [Suspect]
     Active Substance: SACUBITRIL\VALSARTAN
     Dosage: 1 DF, QD
     Route: 048
  2. ENTRESTO [Suspect]
     Active Substance: SACUBITRIL\VALSARTAN
     Indication: PRODUCT USED FOR UNKNOWN INDICATION
     Dosage: 1 DF, BID (24 MG OF SACUBITRIL/ 26MG OF VALSARTAN)
     Route: 048

REACTIONS (5)
  - Nasopharyngitis [Unknown]
  - Ear infection [Unknown]
  - Pain in extremity [Unknown]
  - Dizziness [Unknown]
  - Inappropriate schedule of product administration [Unknown]
